FAERS Safety Report 7724736 (Version 4)
Quarter: 2013Q3

REPORT INFORMATION
  Report Type: Report from Study
  Country: JP (occurrence: JP)
  Receive Date: 20101221
  Receipt Date: 20130913
  Transmission Date: 20140515
  Serious: Yes (Life-Threatening, Other)
  Sender: FDA-Public Use
  Company Number: PHHY2010JP58060

PATIENT
  Age: 68 Year
  Sex: Male
  Weight: 55 kg

DRUGS (6)
  1. AFINITOR [Suspect]
     Indication: METASTATIC RENAL CELL CARCINOMA
     Dosage: 5 MG, DAILY
     Route: 048
     Dates: start: 20100624, end: 20100707
  2. AFINITOR [Suspect]
     Dosage: 5 MG DAILY
     Route: 048
     Dates: start: 20100717, end: 20100720
  3. NEXAVAR [Concomitant]
     Indication: METASTATIC RENAL CELL CARCINOMA
     Dosage: 400 MG, QD
     Route: 048
     Dates: start: 20100805, end: 20100808
  4. PARIET [Concomitant]
     Dosage: 10 MG
     Route: 048
  5. PARIET [Concomitant]
  6. AMLODIN [Concomitant]
     Dosage: 10 MG
     Route: 048

REACTIONS (6)
  - Interstitial lung disease [Recovered/Resolved]
  - Depressed level of consciousness [Recovered/Resolved]
  - Diverticulitis [Unknown]
  - Metastatic renal cell carcinoma [Not Recovered/Not Resolved]
  - Malignant neoplasm progression [Not Recovered/Not Resolved]
  - Platelet count decreased [Unknown]
